FAERS Safety Report 5964354 (Version 24)
Quarter: 2013Q3

REPORT INFORMATION
  Report Type: Spontaneous
  Country: US (occurrence: US)
  Receive Date: 20060120
  Receipt Date: 20130919
  Transmission Date: 20140515
  Serious: Yes (Death, Hospitalization, Disabling, Other)
  Sender: FDA-Public Use
  Company Number: PHEH2006US00793

PATIENT
  Age: 45 Year
  Sex: Female

DRUGS (24)
  1. AREDIA [Suspect]
     Indication: METASTASES TO BONE
     Dosage: 90 MG, QMO
     Dates: start: 1999, end: 2003
  2. ZOMETA [Suspect]
     Indication: METASTASES TO BONE
     Dosage: 4 MG, QMO
     Dates: start: 2003, end: 200505
  3. ADRIAMYCIN + 5-FU [Concomitant]
     Dates: start: 1993
  4. DECADRON                                /CAN/ [Concomitant]
     Dosage: 20 MG, UNK
     Dates: start: 1993
  5. XELODA [Concomitant]
  6. MULTIVITAMINS [Concomitant]
  7. FASLODEX [Concomitant]
  8. FLAGYL [Concomitant]
     Dosage: 500 MG, TID
     Route: 048
  9. K-PHOS [Concomitant]
     Dosage: 250 MG, DAILY
     Route: 048
  10. ATIVAN [Concomitant]
     Dosage: 0.5 MG, UNK
     Route: 048
  11. MEGESTROL [Concomitant]
     Dosage: 400 MG, DAILY
     Route: 048
  12. ZOFRAN [Concomitant]
     Dosage: 8 MG, UNK
     Route: 048
  13. PROTONIX [Concomitant]
     Dosage: 40 MG, DAILY
     Route: 048
  14. POTASSIUM [Concomitant]
     Dosage: 40 MG, DAILY
     Route: 048
  15. PREDNISONE [Concomitant]
     Dosage: 10 MG, DAILY
     Route: 048
  16. COUMADIN [Concomitant]
     Dosage: 1 MG, DAILY
     Route: 048
  17. 5-FU [Concomitant]
     Dosage: 795 MG, UNK
  18. NORMAL SALINE [Concomitant]
  19. HEP-LOCK [Concomitant]
  20. MOTRIN [Concomitant]
     Dosage: 800 MG, UNK
  21. VICODIN [Concomitant]
  22. FUROSEMIDE [Concomitant]
  23. TAXOTERE [Concomitant]
  24. DIAZEPAM [Concomitant]

REACTIONS (91)
  - Death [Fatal]
  - Osteonecrosis of jaw [Unknown]
  - Exposed bone in jaw [Unknown]
  - Gingivitis [Unknown]
  - Infection [Unknown]
  - Pain [Unknown]
  - Emotional distress [Unknown]
  - Life expectancy shortened [Unknown]
  - Pain in jaw [Unknown]
  - Eating disorder [Unknown]
  - Hypoaesthesia oral [Unknown]
  - Osteolysis [Unknown]
  - Osteitis [Unknown]
  - Primary sequestrum [Unknown]
  - Gingival bleeding [Unknown]
  - Toothache [Unknown]
  - Weight decreased [Unknown]
  - Deformity [Unknown]
  - Neck pain [Unknown]
  - Costochondritis [Unknown]
  - Pain in extremity [Unknown]
  - Feeling abnormal [Unknown]
  - Palmar-plantar erythrodysaesthesia syndrome [Unknown]
  - Breast cancer metastatic [Unknown]
  - Pyrexia [Unknown]
  - Oropharyngeal pain [Unknown]
  - Dysphagia [Unknown]
  - Chest pain [Unknown]
  - Dyspnoea [Unknown]
  - Wheezing [Unknown]
  - Cough [Unknown]
  - Abdominal pain [Unknown]
  - Nausea [Unknown]
  - Asthenia [Unknown]
  - Fatigue [Unknown]
  - Atelectasis [Unknown]
  - Metastases to spine [Unknown]
  - Spinal compression fracture [Unknown]
  - Pulmonary mass [Unknown]
  - Pleural fibrosis [Unknown]
  - Pleural effusion [Unknown]
  - Large intestinal obstruction [Unknown]
  - Swelling [Unknown]
  - Blood urea increased [Unknown]
  - Protein total increased [Unknown]
  - Blood bilirubin increased [Unknown]
  - Blood alkaline phosphatase increased [Unknown]
  - Aspartate aminotransferase increased [Unknown]
  - Blood creatine phosphokinase decreased [Unknown]
  - White blood cell count increased [Unknown]
  - Platelet count increased [Unknown]
  - Neutrophil count increased [Unknown]
  - Lymphocyte percentage decreased [Unknown]
  - Monocyte percentage increased [Unknown]
  - Spinal osteoarthritis [Unknown]
  - Hiatus hernia [Unknown]
  - Vision blurred [Unknown]
  - Facial pain [Unknown]
  - Headache [Unknown]
  - Hydronephrosis [Unknown]
  - Hydroureter [Unknown]
  - Urinary tract infection [Unknown]
  - Periodontal disease [Unknown]
  - Arrhythmia [Unknown]
  - Palpitations [Unknown]
  - Metastases to peritoneum [Unknown]
  - Decreased appetite [Unknown]
  - Dysfunctional uterine bleeding [Unknown]
  - Haematuria [Unknown]
  - Sepsis [Unknown]
  - Renal failure [Unknown]
  - Pyelonephritis [Unknown]
  - Pancytopenia [Unknown]
  - Decubitus ulcer [Unknown]
  - Tinnitus [Unknown]
  - Night sweats [Unknown]
  - Dizziness [Unknown]
  - Hypoaesthesia [Unknown]
  - Hypertension [Unknown]
  - Tooth abscess [Unknown]
  - Impaired healing [Unknown]
  - Clostridium difficile infection [Unknown]
  - Oliguria [Unknown]
  - Renal pain [Unknown]
  - Constipation [Unknown]
  - Osteosclerosis [Unknown]
  - Spinal disorder [Unknown]
  - Dehydration [Unknown]
  - Tachycardia [Unknown]
  - Tachypnoea [Unknown]
  - Dental caries [Unknown]
